FAERS Safety Report 19744135 (Version 1)
Quarter: 2021Q3

REPORT INFORMATION
  Report Type: Spontaneous
  Country: US (occurrence: US)
  Receive Date: 20210825
  Receipt Date: 20210825
  Transmission Date: 20211014
  Serious: No
  Sender: FDA-Public Use
  Company Number: US-BEH-2021135197

PATIENT
  Sex: Female

DRUGS (1)
  1. HIZENTRA [Suspect]
     Active Substance: HUMAN IMMUNOGLOBULIN G
     Indication: HYPOGAMMAGLOBULINAEMIA
     Dosage: 20 GRAM, QW
     Route: 058
     Dates: start: 202009

REACTIONS (4)
  - Dyspnoea [Unknown]
  - Nasopharyngitis [Unknown]
  - Asthma [Unknown]
  - Malaise [Unknown]
